FAERS Safety Report 5275894-0 (Version None)
Quarter: 2007Q1

REPORT INFORMATION
  Report Type: 
  Country: None (occurrence: None)
  Receive Date: 20070326
  Receipt Date: 20070315
  Transmission Date: 20070707
  Serious: Yes (Disabling)
  Sender: FDA-Public Use
  Company Number: 2007SE01508

PATIENT
  Age: 36 Year
  Sex: Female

DRUGS (3)
  1. OMEPRAZOLE [Suspect]
     Indication: HELICOBACTER GASTRITIS
     Route: 048
     Dates: start: 20060929, end: 20061001
  2. AMOXICILLIN [Concomitant]
     Indication: HELICOBACTER GASTRITIS
     Route: 048
  3. KLACID [Concomitant]
     Indication: HELICOBACTER GASTRITIS
     Route: 048

REACTIONS (1)
  - BENIGN INTRACRANIAL HYPERTENSION [None]
